FAERS Safety Report 11547209 (Version 1)
Quarter: 2015Q3

REPORT INFORMATION
  Report Type: Spontaneous
  Country: CN (occurrence: CN)
  Receive Date: 20150924
  Receipt Date: 20150924
  Transmission Date: 20151125
  Serious: Yes (Death, Congenital Anomaly, Other)
  Sender: FDA-Public Use
  Company Number: CN-MYLANLABS-2015M1031539

PATIENT

DRUGS (3)
  1. CLEXANE [Suspect]
     Active Substance: ENOXAPARIN SODIUM
     Dosage: UNK
     Route: 064
     Dates: start: 201411, end: 201411
  2. FRAXIPARINE                        /01437701/ [Suspect]
     Active Substance: NADROPARIN CALCIUM
     Dosage: UNK
     Route: 064
     Dates: start: 2014
  3. FONDAPARINUX [Suspect]
     Active Substance: FONDAPARINUX
     Dosage: UNK
     Route: 064
     Dates: start: 201412

REACTIONS (4)
  - Foetal exposure during pregnancy [Unknown]
  - Foetal death [Fatal]
  - Foetal growth restriction [Unknown]
  - Congenital anomaly [Unknown]

NARRATIVE: CASE EVENT DATE: 201501
